FAERS Safety Report 7229117-3 (Version None)
Quarter: 2011Q1

REPORT INFORMATION
  Report Type: 
  Country: None (occurrence: None)
  Receive Date: 20110117
  Receipt Date: 20110113
  Transmission Date: 20110831
  Serious: Yes (Death, Life-Threatening, Other)
  Sender: FDA-Public Use
  Company Number: JP-BAYER-201011187BYL

PATIENT
  Sex: Male
  Weight: 76 kg

DRUGS (7)
  1. NEXAVAR [Suspect]
     Dosage: 400 MG (DAILY DOSE), , ORAL
     Route: 048
     Dates: start: 20100112, end: 20100119
  2. NEXAVAR [Suspect]
     Route: 048
     Dates: start: 20090721, end: 20090913
  3. MONILAC [Concomitant]
     Dosage: 60 ML (DAILY DOSE), , ORAL
     Route: 048
     Dates: start: 20090717
  4. NEXAVAR [Suspect]
     Dosage: 800 MG (DAILY DOSE), , ORAL
     Route: 048
     Dates: start: 20091027, end: 20091226
  5. URSO 250 [Concomitant]
     Dosage: 300 MG (DAILY DOSE), , ORAL
     Route: 048
     Dates: start: 20090713
  6. NEXAVAR [Suspect]
     Indication: HEPATIC NEOPLASM MALIGNANT
     Dosage: 600 MG (DAILY DOSE), , ORAL
     Route: 048
     Dates: start: 20090702, end: 20090721
  7. NEXAVAR [Suspect]
     Dosage: 600 MG (DAILY DOSE), , ORAL
     Route: 048
     Dates: start: 20090914, end: 20091026

REACTIONS (11)
  - DIARRHOEA [None]
  - ASCITES [None]
  - PLATELET COUNT DECREASED [None]
  - HEPATIC FUNCTION ABNORMAL [None]
  - MELAENA [None]
  - HEPATIC NEOPLASM MALIGNANT [None]
  - TUMOUR EMBOLISM [None]
  - HEPATIC FAILURE [None]
  - PALMAR-PLANTAR ERYTHRODYSAESTHESIA SYNDROME [None]
  - JAUNDICE [None]
  - COUGH [None]
